FAERS Safety Report 24408364 (Version 2)
Quarter: 2024Q4

REPORT INFORMATION
  Report Type: Spontaneous
  Country: JP (occurrence: JP)
  Receive Date: 20241007
  Receipt Date: 20241227
  Transmission Date: 20250114
  Serious: Yes (Death, Other)
  Sender: BAYER HEALTHCARE PHARMACEUTICALS INC.
  Company Number: JP-BAYER-2024A140739

PATIENT
  Age: 6 Decade
  Sex: Male

DRUGS (2)
  1. VITRAKVI [Suspect]
     Active Substance: LAROTRECTINIB
     Indication: NTRK gene fusion positive
     Dosage: 200MG/DAY
     Dates: start: 20240828, end: 20241015
  2. VITRAKVI [Suspect]
     Active Substance: LAROTRECTINIB
     Indication: Pancreatic carcinoma

REACTIONS (3)
  - Pancreatic carcinoma [Fatal]
  - Renal impairment [Not Recovered/Not Resolved]
  - Blood creatinine increased [None]

NARRATIVE: CASE EVENT DATE: 20240828
